FAERS Safety Report 13362561 (Version 2)
Quarter: 2017Q3

REPORT INFORMATION
  Report Type: Spontaneous
  Country: US (occurrence: US)
  Receive Date: 20170323
  Receipt Date: 20170720
  Transmission Date: 20171127
  Serious: No
  Sender: FDA-Public Use
  Company Number: US-PFIZER INC-2017120641

PATIENT
  Age: 60 Year
  Sex: Female

DRUGS (7)
  1. CLONAZEPAM. [Concomitant]
     Active Substance: CLONAZEPAM
     Indication: PANIC ATTACK
     Dosage: 2 MG, UNK (2MG X 1)
     Dates: start: 2000
  2. VENLAFAXINE HCL [Suspect]
     Active Substance: VENLAFAXINE HYDROCHLORIDE
     Dosage: 75 MG, 1X/DAY
     Dates: start: 2000, end: 2016
  3. RANITIDINE. [Concomitant]
     Active Substance: RANITIDINE
     Indication: GASTROOESOPHAGEAL REFLUX DISEASE
     Dosage: 300 MG, UNK (300MG X 1)
     Dates: start: 2000
  4. FROVATRIPTAN. [Concomitant]
     Active Substance: FROVATRIPTAN
     Indication: MIGRAINE
     Dosage: 2.5 MG, AS NEEDED
     Dates: start: 2016
  5. CARDIZEM [Concomitant]
     Active Substance: DILTIAZEM HYDROCHLORIDE
     Indication: ATRIAL FIBRILLATION
     Dosage: 120 MG, UNK (120MG X 1)
     Dates: start: 2014
  6. VENLAFAXINE HCL [Suspect]
     Active Substance: VENLAFAXINE HYDROCHLORIDE
     Indication: NEUROTRANSMITTER LEVEL ALTERED
     Dosage: 150 MG, DAILY
  7. ELIQUIS [Concomitant]
     Active Substance: APIXABAN
     Indication: ATRIAL FIBRILLATION
     Dosage: 5 MG, UNK (5MG X 2)
     Dates: start: 2014

REACTIONS (5)
  - Asthenia [Unknown]
  - Drug ineffective [Recovered/Resolved]
  - Withdrawal syndrome [Unknown]
  - Malaise [Unknown]
  - Electroencephalogram abnormal [Unknown]
